FAERS Safety Report 16724488 (Version 5)
Quarter: 2019Q4

REPORT INFORMATION
  Report Type: Spontaneous
  Country: GB (occurrence: GB)
  Receive Date: 20190821
  Receipt Date: 20191104
  Transmission Date: 20200122
  Serious: Yes (Hospitalization, Other)
  Sender: FDA-Public Use
  Company Number: GB-MYLANLABS-2019M1077832

PATIENT
  Sex: Male

DRUGS (2)
  1. CLOZARIL [Suspect]
     Active Substance: CLOZAPINE
     Dosage: 200 MILLIGRAM, QD
     Route: 048
     Dates: start: 2019
  2. CLOZARIL [Suspect]
     Active Substance: CLOZAPINE
     Indication: SCHIZOPHRENIA
     Dosage: UNK UNK, QD
     Route: 048
     Dates: start: 20080515, end: 20190811

REACTIONS (6)
  - Gastrointestinal disorder [Not Recovered/Not Resolved]
  - Heart rate increased [Unknown]
  - Neoplasm malignant [Unknown]
  - Terminal state [Unknown]
  - Vomiting [Unknown]
  - Hepatic cirrhosis [Unknown]

NARRATIVE: CASE EVENT DATE: 2019
